FAERS Safety Report 5946947-6 (Version None)
Quarter: 2008Q4

REPORT INFORMATION
  Report Type: 
  Country: None (occurrence: None)
  Receive Date: 20081107
  Receipt Date: 20081107
  Transmission Date: 20090506
  Serious: Yes (Other)
  Sender: FDA-Public Use
  Company Number: None

PATIENT
  Age: 49 Year
  Sex: Male
  Weight: 144.9 kg

DRUGS (1)
  1. SPIRONOLACTONE [Suspect]
     Indication: HYPERTENSION
     Dosage: 50 MG EVERY DAY PO
     Route: 048
     Dates: start: 20080626, end: 20081002

REACTIONS (5)
  - BLOOD POTASSIUM DECREASED [None]
  - BREAST ENGORGEMENT [None]
  - BREAST MASS [None]
  - BREAST PAIN [None]
  - BREAST SWELLING [None]
